FAERS Safety Report 4726514-2 (Version None)
Quarter: 2005Q3

REPORT INFORMATION
  Report Type: 
  Country: None (occurrence: None)
  Receive Date: 20050725
  Receipt Date: 20050325
  Transmission Date: 20060218
  Serious: No
  Sender: FDA-Public Use
  Company Number: USA050392935

PATIENT
  Age: 38 Year
  Sex: Male
  Weight: 107 kg

DRUGS (7)
  1. STRATTERA [Suspect]
     Indication: ATTENTION DEFICIT/HYPERACTIVITY DISORDER
     Dosage: 80 MG DAY
     Dates: start: 20050303
  2. ALBUTEROL [Concomitant]
  3. ADVAIR DISKUS 100/50 [Concomitant]
  4. SINGULAIR [Concomitant]
  5. LIPITOR [Concomitant]
  6. TRIAMTERENE AND HYDROCHLOROTHIAZIDE [Concomitant]
  7. EFFEXOR XR [Concomitant]

REACTIONS (10)
  - COUGH [None]
  - HANGOVER [None]
  - HEADACHE [None]
  - HYPERACUSIS [None]
  - NAUSEA [None]
  - PHOTOPHOBIA [None]
  - SINUS DISORDER [None]
  - TESTICULAR PAIN [None]
  - TINNITUS [None]
  - WHEEZING [None]
